FAERS Safety Report 15612710 (Version 2)
Quarter: 2019Q4

REPORT INFORMATION
  Report Type: Spontaneous
  Country: US (occurrence: US)
  Receive Date: 20181113
  Receipt Date: 20191031
  Transmission Date: 20200122
  Serious: Yes (Hospitalization)
  Sender: FDA-Public Use
  Company Number: US-PARI RESPIRATORY EQUIPMENT, INC.-2018PAR00077

PATIENT
  Age: 60 Year
  Sex: Male

DRUGS (39)
  1. LEVEMIR [Concomitant]
     Active Substance: INSULIN DETEMIR
  2. NOXAFIL [Concomitant]
     Active Substance: POSACONAZOLE
  3. FAMOTIDINE. [Concomitant]
     Active Substance: FAMOTIDINE
  4. ENOXAPARIN [Concomitant]
     Active Substance: ENOXAPARIN
  5. DORZOLAMIDE/TIMOLOL [Concomitant]
     Active Substance: DORZOLAMIDE\TIMOLOL
  6. ^RIVAVIRIN^ (RIBAVIRIN) [Concomitant]
  7. SMZ/TMP DS [Concomitant]
     Active Substance: SULFAMETHOXAZOLE\TRIMETHOPRIM
  8. NOVOLOG [Concomitant]
     Active Substance: INSULIN ASPART
  9. POTASSIUM CHLORIDE. [Concomitant]
     Active Substance: POTASSIUM CHLORIDE
  10. LEVALBUTEROL. [Concomitant]
     Active Substance: LEVALBUTEROL
  11. METOCLOPRAMIDE. [Concomitant]
     Active Substance: METOCLOPRAMIDE
  12. ATORVASTATIN [Concomitant]
     Active Substance: ATORVASTATIN
  13. METOPROLOL. [Concomitant]
     Active Substance: METOPROLOL
  14. GABAPENTIN. [Concomitant]
     Active Substance: GABAPENTIN
  15. CENTRUM MULTIVITAMIN [Concomitant]
  16. LAMIVUDINE. [Concomitant]
     Active Substance: LAMIVUDINE
  17. NIFEDIPINE. [Concomitant]
     Active Substance: NIFEDIPINE
  18. KITABIS PAK [Suspect]
     Active Substance: TOBRAMYCIN
     Dosage: 300 MG, 2X/DAY EVERY 12 HOURS
     Route: 055
  19. MIRTAZAPINE. [Concomitant]
     Active Substance: MIRTAZAPINE
  20. PREDNISONE. [Concomitant]
     Active Substance: PREDNISONE
  21. LATANOPROST. [Concomitant]
     Active Substance: LATANOPROST
  22. LEVALBUTEROL. [Concomitant]
     Active Substance: LEVALBUTEROL
  23. KITABIS PAK [Suspect]
     Active Substance: TOBRAMYCIN
     Indication: IDIOPATHIC PULMONARY FIBROSIS
     Dosage: 300 MG, 2X/DAY EVERY 12 HOURS
     Route: 055
     Dates: start: 20180831
  24. MYCOPHENOLATE [Concomitant]
     Active Substance: MYCOPHENOLIC ACID
  25. TACROLIMUS. [Concomitant]
     Active Substance: TACROLIMUS
  26. PREDNISONE. [Concomitant]
     Active Substance: PREDNISONE
  27. DOCUSATE SODIUM. [Concomitant]
     Active Substance: DOCUSATE SODIUM
  28. BRIMONIDINE TARTRATE. [Concomitant]
     Active Substance: BRIMONIDINE TARTRATE
  29. TACROLIMUS. [Concomitant]
     Active Substance: TACROLIMUS
  30. ACIDOPHILUS [Concomitant]
     Active Substance: LACTOBACILLUS ACIDOPHILUS
  31. CALCIUM CITRATE + D3 [Concomitant]
  32. ALBUTEROL SULFATE AND IPRATROPIUM BROMIDE [Concomitant]
     Active Substance: ALBUTEROL SULFATE\IPRATROPIUM BROMIDE
  33. FUROSEMIDE. [Concomitant]
     Active Substance: FUROSEMIDE
  34. BENZONATATE. [Concomitant]
     Active Substance: BENZONATATE
  35. VALGANCICLOVIR. [Concomitant]
     Active Substance: VALGANCICLOVIR
  36. SODIUM CHLORIDE. [Concomitant]
     Active Substance: SODIUM CHLORIDE
  37. SLOW-MAG [Concomitant]
     Active Substance: MAGNESIUM CHLORIDE
  38. SENNA-LAX [Concomitant]
     Active Substance: SENNOSIDES
  39. DOXYCYCLINE. [Concomitant]
     Active Substance: DOXYCYCLINE

REACTIONS (5)
  - Weight decreased [Not Recovered/Not Resolved]
  - Dyspnoea [Unknown]
  - Off label use [Not Recovered/Not Resolved]
  - Lung transplant [Unknown]
  - Ageusia [Not Recovered/Not Resolved]

NARRATIVE: CASE EVENT DATE: 20180831
